FAERS Safety Report 5703297-0 (Version None)
Quarter: 2008Q2

REPORT INFORMATION
  Report Type: 
  Country: None (occurrence: None)
  Receive Date: 20080411
  Receipt Date: 20080402
  Transmission Date: 20081010
  Serious: Yes (Death, Hospitalization)
  Sender: FDA-Public Use
  Company Number: AU-PFIZER INC-2008017820

PATIENT
  Sex: Female

DRUGS (1)
  1. SUTENT [Suspect]
     Indication: RENAL CELL CARCINOMA

REACTIONS (2)
  - DISEASE PROGRESSION [None]
  - RENAL CELL CARCINOMA [None]
